FAERS Safety Report 16438373 (Version 1)
Quarter: 2019Q2

REPORT INFORMATION
  Report Type: Spontaneous
  Country: ES (occurrence: ES)
  Receive Date: 20190617
  Receipt Date: 20190617
  Transmission Date: 20190711
  Serious: Yes (Other)
  Sender: FDA-Public Use
  Company Number: ES-TEVA-2019-ES-1063208

PATIENT
  Age: 55 Year
  Sex: Female

DRUGS (5)
  1. TOBRAMICINA TEVA 300 MG/5 ML SOLUCION PARA INHALACION POR NEBULIZADOR [Suspect]
     Active Substance: TOBRAMYCIN
     Indication: BACTERIAL DISEASE CARRIER
     Route: 055
     Dates: start: 20190409, end: 20190414
  2. FOSTER 200 MICROGRAMOS/6 MICROGRAMOS POR PULSACION SOLUCION PARA INHAL [Concomitant]
     Indication: ASTHMA
     Route: 055
  3. SPIRIVA [Concomitant]
     Active Substance: TIOTROPIUM BROMIDE MONOHYDRATE
     Indication: ASTHMA
     Route: 055
  4. VENTOLIN 100 MICROGRAMOS/INHALACI?N SUSPENSI?N PARA INHALACI?N EN ENVA [Concomitant]
     Indication: ASTHMA
     Route: 055
  5. AERIUS (DESLORATADINE) [Concomitant]
     Active Substance: DESLORATADINE
     Indication: ASTHMA
     Route: 048

REACTIONS (2)
  - Dizziness [Recovered/Resolved]
  - Paraesthesia [Recovered/Resolved]

NARRATIVE: CASE EVENT DATE: 20190412
